FAERS Safety Report 23174909 (Version 1)
Quarter: 2023Q4

REPORT INFORMATION
  Report Type: Report from Study
  Country: BR (occurrence: BR)
  Receive Date: 20231112
  Receipt Date: 20231112
  Transmission Date: 20240110
  Serious: Yes (Hospitalization, Other)
  Sender: FDA-Public Use
  Company Number: BR-002147023-NVSC2023BR221604

PATIENT
  Sex: Male
  Weight: 62 kg

DRUGS (3)
  1. ENTRESTO [Suspect]
     Active Substance: SACUBITRIL\VALSARTAN
     Indication: Cardiac failure
     Dosage: 50 MG, BID
     Route: 048
     Dates: start: 202306
  2. ENTRESTO [Suspect]
     Active Substance: SACUBITRIL\VALSARTAN
     Dosage: 50 MG, QD (EVERY NIGHT)
     Route: 048
  3. WARFARIN SODIUM [Suspect]
     Active Substance: WARFARIN SODIUM
     Indication: Product used for unknown indication
     Dosage: UNK
     Route: 065

REACTIONS (14)
  - Haematemesis [Recovered/Resolved]
  - Diarrhoea haemorrhagic [Recovered/Resolved]
  - Blood urine present [Recovered/Resolved]
  - Internal haemorrhage [Recovered/Resolved]
  - Hypotension [Recovered/Resolved]
  - Decreased appetite [Recovering/Resolving]
  - Oxygen saturation decreased [Recovered/Resolved]
  - Dyspnoea [Recovering/Resolving]
  - Fatigue [Recovering/Resolving]
  - Sluggishness [Recovering/Resolving]
  - Muscular weakness [Recovering/Resolving]
  - Inappropriate schedule of product administration [Unknown]
  - Prescribed underdose [Unknown]
  - Asthenia [Recovering/Resolving]

NARRATIVE: CASE EVENT DATE: 20230101
